FAERS Safety Report 6106526-7 (Version None)
Quarter: 2009Q1

REPORT INFORMATION
  Report Type: 
  Country: None (occurrence: None)
  Receive Date: 20090304
  Receipt Date: 20090224
  Transmission Date: 20090719
  Serious: Yes (Hospitalization)
  Sender: FDA-Public Use
  Company Number: TPA2009A00314

PATIENT
  Age: 4 Decade
  Sex: Female

DRUGS (6)
  1. ROZEREM [Suspect]
     Indication: INSOMNIA
     Dosage: 8-16MG QHS, PER ORAL
     Route: 048
     Dates: end: 20090201
  2. MORPHINE [Concomitant]
  3. CYMBALTA [Concomitant]
  4. REMERON [Concomitant]
  5. NAMENDA [Concomitant]
  6. NMDA ANTAGONIST (ALL OTHER THERAPEUTIC PRODUCTS) [Concomitant]

REACTIONS (5)
  - ASTHENIA [None]
  - MALAISE [None]
  - NAUSEA [None]
  - PAIN [None]
  - SUPRAVENTRICULAR TACHYCARDIA [None]
